FAERS Safety Report 19924243 (Version 1)
Quarter: 2021Q4

REPORT INFORMATION
  Report Type: Spontaneous
  Country: FR (occurrence: FR)
  Receive Date: 20211006
  Receipt Date: 20211006
  Transmission Date: 20220303
  Serious: Yes (Hospitalization)
  Sender: FDA-Public Use
  Company Number: None

PATIENT
  Age: 47 Year
  Sex: Male

DRUGS (3)
  1. ZYPADHERA [Suspect]
     Active Substance: OLANZAPINE PAMOATE
     Indication: Delusional disorder, unspecified type
     Dosage: 405 MG, UNKNOWN
     Route: 030
     Dates: start: 20210519
  2. ZYPADHERA [Suspect]
     Active Substance: OLANZAPINE PAMOATE
     Indication: Delusional disorder, unspecified type
     Dosage: 405 MG, UNKNOWN
     Route: 030
     Dates: start: 20210519
  3. ZYPADHERA [Suspect]
     Active Substance: OLANZAPINE PAMOATE
     Indication: Delusional disorder, unspecified type
     Dosage: 405 MG, UNKNOWN
     Route: 030
     Dates: start: 20210519

REACTIONS (2)
  - Transient ischaemic attack [Recovering/Resolving]
  - Deep vein thrombosis [Recovering/Resolving]

NARRATIVE: CASE EVENT DATE: 20210728
